FAERS Safety Report 15747273 (Version 1)
Quarter: 2018Q4

REPORT INFORMATION
  Report Type: Spontaneous
  Country: US (occurrence: US)
  Receive Date: 20181220
  Receipt Date: 20181220
  Transmission Date: 20190205
  Serious: No
  Sender: FDA-Public Use
  Company Number: US-AVADEL SPECIALTY PHARMACEUTICALS, LLC-2018AVA00391

PATIENT
  Age: 79 Year
  Sex: Male
  Weight: 55.78 kg

DRUGS (7)
  1. THIAZIDE DIURETICS [Concomitant]
  2. CALCIUM [Concomitant]
     Active Substance: CALCIUM
  3. METFORMIN [Concomitant]
     Active Substance: METFORMIN HYDROCHLORIDE
  4. AMLODIPINE [Concomitant]
     Active Substance: AMLODIPINE BESYLATE
  5. COQ10 [Concomitant]
     Active Substance: UBIDECARENONE
  6. OXYBUTYNIN. [Concomitant]
     Active Substance: OXYBUTYNIN CHLORIDE
  7. NOCTIVA [Suspect]
     Active Substance: DESMOPRESSIN ACETATE
     Indication: HYPERTONIC BLADDER
     Dosage: 0.83 ?G, 1X/DAY 120 MINUTES BEFORE BEDTIME
     Route: 045
     Dates: start: 201809, end: 201809

REACTIONS (4)
  - Drug ineffective for unapproved indication [Recovered/Resolved]
  - Inappropriate schedule of product administration [Recovered/Resolved]
  - Nasal congestion [Recovered/Resolved]
  - Pruritus [Recovered/Resolved]

NARRATIVE: CASE EVENT DATE: 201809
